FAERS Safety Report 8621646-0 (Version None)
Quarter: 2012Q3

REPORT INFORMATION
  Report Type: 
  Country: None (occurrence: None)
  Receive Date: 20120820
  Receipt Date: 20120820
  Transmission Date: 20120928
  Serious: No
  Sender: FDA-Public Use
  Company Number: None

PATIENT
  Sex: Female

DRUGS (1)
  1. XELODA [Suspect]
     Dosage: 1000MG, QAM, 1WEEKPO 500 MG, QPM, PO
     Route: 048
     Dates: start: 20120724

REACTIONS (2)
  - OEDEMA PERIPHERAL [None]
  - INFLAMMATION [None]
